FAERS Safety Report 8202795 (Version 2)
Quarter: 2013Q3

REPORT INFORMATION
  Report Type: Report from Study
  Country: US (occurrence: US)
  Receive Date: 20111027
  Receipt Date: 20130909
  Transmission Date: 20140515
  Serious: Yes (Hospitalization)
  Sender: FDA-Public Use
  Company Number: US-ACTELION-A-US2011-55975

PATIENT
  Age: 61 Year
  Sex: Female

DRUGS (6)
  1. TRACLEER [Suspect]
     Indication: PULMONARY ARTERIAL HYPERTENSION
     Dosage: 125 MG, BID
     Route: 048
     Dates: start: 2010
  2. TRACLEER [Suspect]
     Dosage: 62.5 MG, BID
     Route: 048
     Dates: start: 201001, end: 201001
  3. IODINE [Suspect]
     Dosage: UNK
     Dates: start: 20110405, end: 20110405
  4. REVATIO [Concomitant]
  5. LYRICA [Concomitant]
     Dosage: 150 MG, BID
  6. LEVOTHYROXINE [Concomitant]
     Dosage: 150 MG, UNK

REACTIONS (7)
  - Mitral valve incompetence [Recovered/Resolved]
  - Concomitant disease aggravated [Recovered/Resolved]
  - Mitral valve replacement [Recovered/Resolved]
  - Iodine allergy [Recovered/Resolved]
  - Neuropathy peripheral [Unknown]
  - Condition aggravated [Unknown]
  - Malaise [Recovered/Resolved]
